FAERS Safety Report 25818319 (Version 1)
Quarter: 2025Q3

REPORT INFORMATION
  Report Type: Report from Study
  Country: CA (occurrence: CA)
  Receive Date: 20250918
  Receipt Date: 20250918
  Transmission Date: 20251020
  Serious: Yes (Death, Hospitalization, Other)
  Sender: ABBVIE
  Company Number: CA-ABBVIE-6464405

PATIENT
  Age: 82 Year
  Sex: Female

DRUGS (2)
  1. VENCLEXTA [Suspect]
     Active Substance: VENETOCLAX
     Indication: Acute myeloid leukaemia
     Dosage: FOR 21 DAYS, FORM STRENGTH : 50 MILLIGRAM
     Route: 048
     Dates: start: 20211110, end: 202310
  2. AZACITIDINE [Concomitant]
     Active Substance: AZACITIDINE
     Indication: Product used for unknown indication
     Dates: end: 202412

REACTIONS (3)
  - Death [Fatal]
  - Hospice care [Unknown]
  - Myelosuppression [Unknown]

NARRATIVE: CASE EVENT DATE: 20231001
